FAERS Safety Report 23538156 (Version 1)
Quarter: 2024Q1

REPORT INFORMATION
  Report Type: Spontaneous
  Country: ES (occurrence: ES)
  Receive Date: 20240219
  Receipt Date: 20240219
  Transmission Date: 20240409
  Serious: Yes (Other)
  Sender: FDA-Public Use
  Company Number: ES-AMGEN-ESPSP2023211504

PATIENT
  Age: 60 Year
  Sex: Female

DRUGS (24)
  1. ADALIMUMAB [Suspect]
     Active Substance: ADALIMUMAB\ISOPROPYL ALCOHOL
     Indication: Peripheral spondyloarthritis
     Dosage: UNK
     Route: 065
  2. ADALIMUMAB [Suspect]
     Active Substance: ADALIMUMAB\ISOPROPYL ALCOHOL
     Indication: Axial spondyloarthritis
  3. ADALIMUMAB [Suspect]
     Active Substance: ADALIMUMAB\ISOPROPYL ALCOHOL
     Indication: Inflammatory bowel disease
  4. ETANERCEPT [Concomitant]
     Active Substance: ETANERCEPT
     Indication: Axial spondyloarthritis
     Route: 065
  5. ETANERCEPT [Concomitant]
     Active Substance: ETANERCEPT
     Indication: Axial spondyloarthritis
     Route: 065
  6. ETANERCEPT [Concomitant]
     Active Substance: ETANERCEPT
     Indication: Inflammatory bowel disease
  7. ETANERCEPT [Concomitant]
     Active Substance: ETANERCEPT
     Indication: Peripheral spondyloarthritis
  8. GOLIMUMAB [Concomitant]
     Active Substance: GOLIMUMAB
     Indication: Peripheral spondyloarthritis
     Route: 065
  9. GOLIMUMAB [Concomitant]
     Active Substance: GOLIMUMAB
     Indication: Peripheral spondyloarthritis
     Route: 065
  10. GOLIMUMAB [Concomitant]
     Active Substance: GOLIMUMAB
     Indication: Axial spondyloarthritis
  11. GOLIMUMAB [Concomitant]
     Active Substance: GOLIMUMAB
     Indication: Inflammatory bowel disease
  12. GOLIMUMAB [Concomitant]
     Active Substance: GOLIMUMAB
     Indication: Musculoskeletal disorder
  13. INFLIXIMAB [Concomitant]
     Active Substance: INFLIXIMAB
     Indication: Peripheral spondyloarthritis
     Route: 065
  14. INFLIXIMAB [Concomitant]
     Active Substance: INFLIXIMAB
     Indication: Peripheral spondyloarthritis
     Route: 065
  15. INFLIXIMAB [Concomitant]
     Active Substance: INFLIXIMAB
     Indication: Axial spondyloarthritis
  16. INFLIXIMAB [Concomitant]
     Active Substance: INFLIXIMAB
     Indication: Inflammatory bowel disease
  17. SECUKINUMAB [Concomitant]
     Active Substance: SECUKINUMAB
     Indication: Axial spondyloarthritis
     Route: 065
  18. SECUKINUMAB [Concomitant]
     Active Substance: SECUKINUMAB
     Indication: Inflammatory bowel disease
  19. SECUKINUMAB [Concomitant]
     Active Substance: SECUKINUMAB
     Indication: Peripheral spondyloarthritis
  20. USTEKINUMAB [Concomitant]
     Active Substance: USTEKINUMAB
     Indication: Axial spondyloarthritis
     Route: 065
  21. USTEKINUMAB [Concomitant]
     Active Substance: USTEKINUMAB
     Indication: Axial spondyloarthritis
     Route: 065
  22. USTEKINUMAB [Concomitant]
     Active Substance: USTEKINUMAB
     Indication: Inflammatory bowel disease
  23. USTEKINUMAB [Concomitant]
     Active Substance: USTEKINUMAB
     Indication: Musculoskeletal disorder
  24. USTEKINUMAB [Concomitant]
     Active Substance: USTEKINUMAB
     Indication: Peripheral spondyloarthritis

REACTIONS (2)
  - Peripheral spondyloarthritis [Recovering/Resolving]
  - Axial spondyloarthritis [Recovering/Resolving]
